FAERS Safety Report 4397616-8 (Version None)
Quarter: 2004Q3

REPORT INFORMATION
  Report Type: 
  Country: None (occurrence: None)
  Receive Date: 20040714
  Receipt Date: 20040629
  Transmission Date: 20050211
  Serious: Yes (Death, Hospitalization, Other)
  Sender: FDA-Public Use
  Company Number: A-US2004-05068

PATIENT
  Age: 8 Month
  Sex: Male

DRUGS (16)
  1. TRACLEER [Suspect]
     Indication: PULMONARY HYPERTENSION
     Dosage: SEE IMAGE
     Route: 048
     Dates: start: 20040101, end: 20040101
  2. TRACLEER [Suspect]
     Indication: PULMONARY HYPERTENSION
     Dosage: SEE IMAGE
     Route: 048
     Dates: start: 20040201, end: 20040415
  3. TRACLEER [Suspect]
     Indication: PULMONARY HYPERTENSION
     Dosage: SEE IMAGE
     Route: 048
     Dates: start: 20040416, end: 20040418
  4. TRACLEER [Suspect]
     Indication: PULMONARY HYPERTENSION
     Dosage: SEE IMAGE
     Route: 048
     Dates: start: 20040101
  5. CHLOROTHIAZIDE [Concomitant]
  6. FUROSEMIDE [Concomitant]
  7. ANZEMET (DOLASETRON MESILATE) [Concomitant]
  8. IRON (IRON) [Concomitant]
  9. GENTAMICIN [Concomitant]
  10. IBUPROFEN [Concomitant]
  11. METHADONE HCL [Concomitant]
  12. ATIVAN [Concomitant]
  13. PRILOSEC [Concomitant]
  14. PREDNISONE TAB [Concomitant]
  15. SILDENAFIL (SILDENAFIL) [Concomitant]
  16. FLOLAN [Concomitant]

REACTIONS (8)
  - ABDOMINAL PAIN [None]
  - ALANINE AMINOTRANSFERASE INCREASED [None]
  - ASPARTATE AMINOTRANSFERASE INCREASED [None]
  - CARDIO-RESPIRATORY ARREST [None]
  - CONDITION AGGRAVATED [None]
  - MELAENA [None]
  - PULMONARY HYPERTENSION [None]
  - VOMITING [None]
